FAERS Safety Report 20489453 (Version 2)
Quarter: 2022Q2

REPORT INFORMATION
  Report Type: Report from Study
  Country: FR (occurrence: FR)
  Receive Date: 20220218
  Receipt Date: 20220415
  Transmission Date: 20220721
  Serious: Yes (Hospitalization)
  Sender: FDA-Public Use
  Company Number: FR-ABBVIE-22K-056-4279769-00

PATIENT
  Age: 75 Year
  Sex: Male
  Weight: 74 kg

DRUGS (3)
  1. HUMIRA [Suspect]
     Active Substance: ADALIMUMAB
     Indication: Colitis ulcerative
     Route: 058
     Dates: start: 20101124
  2. HYDROCHLOROTHIAZIDE\VALSARTAN [Concomitant]
     Active Substance: HYDROCHLOROTHIAZIDE\VALSARTAN
     Indication: Hypertension
     Dosage: 160/25 MILIGRAMS
     Route: 048
     Dates: start: 1986
  3. TAHOR [Concomitant]
     Active Substance: ATORVASTATIN CALCIUM
     Indication: Lipids decreased
     Route: 048
     Dates: start: 1986

REACTIONS (2)
  - Hypertension [Recovered/Resolved]
  - Escherichia infection [Recovered/Resolved]

NARRATIVE: CASE EVENT DATE: 20211201
